FAERS Safety Report 11839393 (Version 1)
Quarter: 2015Q4

REPORT INFORMATION
  Report Type: Spontaneous
  Country: US (occurrence: None)
  Receive Date: 20151209
  Receipt Date: 20151209
  Transmission Date: 20160305
  Serious: Yes (Other)
  Sender: FDA-Public Use
  Company Number: AUR-APL-2015-01461

PATIENT
  Sex: Male

DRUGS (1)
  1. GLYBURIDE (GLIBENCLAMIDE) [Suspect]
     Active Substance: GLYBURIDE
     Indication: PRODUCT USED FOR UNKNOWN INDICATION
     Route: 064

REACTIONS (2)
  - Blood glucose decreased [None]
  - Foetal exposure during pregnancy [None]
